FAERS Safety Report 10408431 (Version 1)
Quarter: 2014Q3

REPORT INFORMATION
  Report Type: Spontaneous
  Country: US (occurrence: None)
  Receive Date: 20140825
  Receipt Date: 20140825
  Transmission Date: 20150326
  Serious: No
  Sender: FDA-Public Use
  Company Number: None

PATIENT
  Age: 78 Year
  Sex: Male
  Weight: 77.11 kg

DRUGS (1)
  1. METHYLPREDNISOLONE [Suspect]
     Active Substance: METHYLPREDNISOLONE
     Indication: MYALGIA
     Dosage: 4 MG PK 21 PILLS DAILY 6,5,4,3,2,1, ORAL
     Route: 048
     Dates: start: 20140508, end: 20140513

REACTIONS (4)
  - Mineral metabolism disorder [None]
  - Muscle spasms [None]
  - Extrasystoles [None]
  - Unevaluable event [None]

NARRATIVE: CASE EVENT DATE: 20140508
